FAERS Safety Report 5733763-3 (Version None)
Quarter: 2008Q2

REPORT INFORMATION
  Report Type: 
  Country: None (occurrence: None)
  Receive Date: 20080509
  Receipt Date: 20080429
  Transmission Date: 20081010
  Serious: Yes (Other)
  Sender: FDA-Public Use
  Company Number: AU-PFIZER INC-2008025796

PATIENT
  Sex: Male
  Weight: 94.5 kg

DRUGS (3)
  1. CHANTIX [Suspect]
  2. ACETYLSALICYLIC ACID SRT [Concomitant]
     Route: 048
  3. FISH OIL [Concomitant]
     Route: 048

REACTIONS (3)
  - PALPITATIONS [None]
  - VENTRICULAR EXTRASYSTOLES [None]
  - VENTRICULAR FIBRILLATION [None]
